FAERS Safety Report 11397333 (Version 1)
Quarter: 2015Q3

REPORT INFORMATION
  Report Type: Spontaneous
  Country: US (occurrence: US)
  Receive Date: 20150819
  Receipt Date: 20150819
  Transmission Date: 20151125
  Serious: No
  Sender: FDA-Public Use
  Company Number: US-BAUSCH-2014ST000107

PATIENT
  Age: 34 Year
  Sex: Male
  Weight: 70.3 kg

DRUGS (2)
  1. ZEGERID [Suspect]
     Active Substance: OMEPRAZOLE\SODIUM BICARBONATE
     Indication: ABDOMINAL PAIN UPPER
     Dosage: 1 DF (PACKET), EVERY DAY
     Route: 048
     Dates: start: 20140701, end: 20140730
  2. VSL 3 [Concomitant]
     Indication: ABDOMINAL PAIN UPPER

REACTIONS (1)
  - Drug ineffective [Not Recovered/Not Resolved]

NARRATIVE: CASE EVENT DATE: 20140701
